FAERS Safety Report 6278720-6 (Version None)
Quarter: 2009Q3

REPORT INFORMATION
  Report Type: 
  Country: None (occurrence: None)
  Receive Date: 20090721
  Receipt Date: 20090713
  Transmission Date: 20100115
  Serious: Yes (Death, Hospitalization)
  Sender: FDA-Public Use
  Company Number: 2009AL004165

PATIENT
  Age: 66 Year
  Sex: Female

DRUGS (1)
  1. DIGOXIN [Suspect]
     Dosage: 0.25MG, PO
     Route: 048
     Dates: end: 20080426

REACTIONS (5)
  - ABDOMINAL PAIN UPPER [None]
  - DIARRHOEA [None]
  - SHOULDER OPERATION [None]
  - SUDDEN CARDIAC DEATH [None]
  - THERAPEUTIC AGENT TOXICITY [None]
